FAERS Safety Report 8811057 (Version 2)
Quarter: 2013Q1

REPORT INFORMATION
  Report Type: Spontaneous
  Country: CA (occurrence: CA)
  Receive Date: 20120927
  Receipt Date: 20130205
  Transmission Date: 20140127
  Serious: Yes (Other)
  Sender: FDA-Public Use
  Company Number: PHHY2012CA079953

PATIENT
  Age: 57 Year
  Sex: Female

DRUGS (8)
  1. AFINITOR [Suspect]
     Indication: METASTATIC RENAL CELL CARCINOMA
     Dosage: 10 MG, DAILY
     Route: 048
     Dates: start: 20111216, end: 20120817
  2. AFINITOR [Suspect]
     Dosage: UNK
     Dates: end: 201208
  3. HYDROCORTISONE [Concomitant]
     Dosage: 10 MG, UNK
  4. MAGNESIUM [Concomitant]
  5. PAROXETINE [Concomitant]
     Dosage: 30 MG, DAILY
     Route: 048
  6. VITAMIN D [Concomitant]
     Dosage: UNK
     Dates: start: 2005
  7. CALCIUM [Concomitant]
  8. MULTIVITAMINS [Concomitant]

REACTIONS (2)
  - Pulmonary toxicity [Unknown]
  - Lung disorder [Unknown]
